FAERS Safety Report 4924766-7 (Version None)
Quarter: 2006Q1

REPORT INFORMATION
  Report Type: 
  Country: None (occurrence: None)
  Receive Date: 20060222
  Receipt Date: 20060209
  Transmission Date: 20060701
  Serious: Yes (Hospitalization)
  Sender: FDA-Public Use
  Company Number: 2006AL000303

PATIENT
  Age: 55 Year
  Sex: Male
  Weight: 68.0396 kg

DRUGS (9)
  1. ALPRAZOLAM [Suspect]
     Indication: ANXIETY
     Dosage: 0.25 MG; PO
     Route: 048
  2. ANTI-DIABETICS [Concomitant]
  3. ACIPHEX [Concomitant]
  4. ATENOLOL [Concomitant]
  5. ATIVAN [Concomitant]
  6. LASIX [Concomitant]
  7. LIPITOR [Suspect]
  8. LISINOPRIL [Concomitant]
  9. HYDROCHLOROTHIAZIDE [Concomitant]

REACTIONS (6)
  - ANAPHYLACTIC REACTION [None]
  - DISORIENTATION [None]
  - HEART RATE IRREGULAR [None]
  - NEUROPATHY PERIPHERAL [None]
  - THROAT TIGHTNESS [None]
  - TREMOR [None]
